FAERS Safety Report 12633874 (Version 3)
Quarter: 2016Q4

REPORT INFORMATION
  Report Type: Spontaneous
  Country: FR (occurrence: FR)
  Receive Date: 20160809
  Receipt Date: 20161005
  Transmission Date: 20170207
  Serious: Yes (Disabling, Other)
  Sender: FDA-Public Use
  Company Number: FR-PFIZER INC-2016369484

PATIENT
  Age: 14 Year
  Sex: Female
  Weight: 44 kg

DRUGS (2)
  1. ADRIBLASTINE [Suspect]
     Active Substance: DOXORUBICIN
     Indication: OSTEOSARCOMA
     Dosage: 37.5 MG/M2, CYCLIC, (2 CYCLES)
     Route: 041
     Dates: start: 20160505
  2. CISPLATIN. [Suspect]
     Active Substance: CISPLATIN
     Indication: OSTEOSARCOMA
     Dosage: 170 MG (120 MG/M2), UNK
     Route: 041
     Dates: start: 20160506

REACTIONS (11)
  - Deafness bilateral [Recovered/Resolved with Sequelae]
  - Mucosal inflammation [Unknown]
  - Mucosal toxicity [Unknown]
  - Pseudomonas infection [Unknown]
  - Eye irritation [Unknown]
  - Pain [Recovering/Resolving]
  - Ototoxicity [Unknown]
  - Febrile bone marrow aplasia [Unknown]
  - Vomiting [Unknown]
  - Vision blurred [Unknown]
  - Haematotoxicity [Unknown]

NARRATIVE: CASE EVENT DATE: 20160531
